FAERS Safety Report 10098446 (Version 4)
Quarter: 2014Q3

REPORT INFORMATION
  Report Type: Report from Study
  Country: AU (occurrence: AU)
  Receive Date: 20140423
  Receipt Date: 20140910
  Transmission Date: 20150326
  Serious: Yes (Hospitalization, Other)
  Sender: FDA-Public Use
  Company Number: PHHY2014AU041596

PATIENT
  Age: 89 Year
  Sex: Female
  Weight: 64.6 kg

DRUGS (37)
  1. CALTRATE [Concomitant]
     Active Substance: CALCIUM CARBONATE
     Indication: VITAMIN D DEFICIENCY
     Dosage: 1 DF, EQUIVALENT TO 600MG CA, DAILY
  2. FERRO F [Concomitant]
     Indication: IRON DEFICIENCY ANAEMIA
     Dosage: 1 DF, (310MG/350MCG), DAILY
     Route: 048
  3. MAGMIN [Concomitant]
     Active Substance: MAGNESIUM ASPARTATE
     Indication: MAGNESIUM DEFICIENCY
     Dosage: 2 DF, TID
     Route: 048
  4. AMITRIPTYLINE HCL [Concomitant]
     Active Substance: AMITRIPTYLINE
     Indication: DEPRESSION
     Dosage: 1 DF, (1 NOCTE)
     Route: 048
  5. AVAPRO [Concomitant]
     Active Substance: IRBESARTAN
     Indication: HYPERTENSION
     Dosage: 150 MG, UNK
  6. INFLUENZA [Concomitant]
     Active Substance: INFLUENZA VIRUS VACCINE
     Dosage: UNK
     Dates: start: 20040512
  7. INFLUENZA [Concomitant]
     Active Substance: INFLUENZA VIRUS VACCINE
     Dosage: UNK
     Dates: start: 20060320
  8. PNEUMOVAX 23 [Concomitant]
     Active Substance: PNEUMOCOCCAL VACCINE, POLYVALENT 23
     Indication: IMMUNISATION
     Dosage: UNK
     Dates: start: 20030403
  9. GALVUS [Concomitant]
     Active Substance: VILDAGLIPTIN
     Indication: TYPE 2 DIABETES MELLITUS
     Dosage: 1 DF, MANE
     Route: 048
  10. LIPITOR [Concomitant]
     Active Substance: ATORVASTATIN CALCIUM
     Indication: HYPERCHOLESTEROLAEMIA
     Dosage: 1 DF, DAILY
  11. MOVICOL [Concomitant]
     Active Substance: POLYETHYLENE GLYCOL 3350\POTASSIUM CHLORIDE\SODIUM BICARBONATE\SODIUM CHLORIDE
     Indication: CONSTIPATION
     Dosage: 2 DF, 13.25G/350.7ML/46.6MG/178.5MG, MANE, PRN
     Route: 048
  12. NITROLINGUAL-SPRAY N [Concomitant]
     Indication: ANGINA PECTORIS
     Dosage: 1 DF, 1 PUFF S/L PRN
  13. SOMAC [Concomitant]
     Active Substance: PANTOPRAZOLE SODIUM
     Indication: GASTROOESOPHAGEAL REFLUX DISEASE
     Dosage: 1 DF, BID
  14. INFLUENZA [Concomitant]
     Active Substance: INFLUENZA VIRUS VACCINE
     Dosage: UNK
     Dates: start: 20070227
  15. PNEUMOVAX 23 [Concomitant]
     Active Substance: PNEUMOCOCCAL VACCINE, POLYVALENT 23
     Dosage: UNK
     Dates: start: 20080404
  16. ADT [Concomitant]
     Active Substance: AMITRIPTYLINE HYDROCHLORIDE
     Indication: IMMUNISATION
     Dosage: UNK
     Dates: start: 20060310
  17. IMDUR [Concomitant]
     Active Substance: ISOSORBIDE MONONITRATE
     Indication: ANGINA PECTORIS
     Dosage: 1 DF, DAILY
  18. INFLUENZA [Concomitant]
     Active Substance: INFLUENZA VIRUS VACCINE
     Dosage: UNK
     Dates: start: 20090312
  19. PANVAX [Concomitant]
     Indication: IMMUNISATION
     Dosage: UNK
     Dates: start: 20091105
  20. FLUVAX [Concomitant]
     Active Substance: INFLUENZA VIRUS VACCINE
     Indication: IMMUNISATION
     Dosage: UNK
     Dates: start: 20130409
  21. FLUVAX [Concomitant]
     Active Substance: INFLUENZA VIRUS VACCINE
     Dosage: UNK
     Dates: start: 20140325
  22. INFLUENZA [Concomitant]
     Active Substance: INFLUENZA VIRUS VACCINE
     Indication: IMMUNISATION
     Dosage: UNK
     Dates: start: 20030403
  23. INFLUENZA [Concomitant]
     Active Substance: INFLUENZA VIRUS VACCINE
     Dosage: UNK
     Dates: start: 20050502
  24. INFLUENZA [Concomitant]
     Active Substance: INFLUENZA VIRUS VACCINE
     Dosage: UNK
     Dates: start: 20080404
  25. INFLUENZA [Concomitant]
     Active Substance: INFLUENZA VIRUS VACCINE
     Dosage: UNK
     Dates: start: 20110323
  26. INFLUENZA [Concomitant]
     Active Substance: INFLUENZA VIRUS VACCINE
     Dosage: UNK
     Dates: start: 20100331
  27. CLOPIDOGREL [Concomitant]
     Active Substance: CLOPIDOGREL BISULFATE
     Indication: ANGINA PECTORIS
     Dosage: 1 DF, DAILY
     Route: 048
  28. MINAX [Concomitant]
     Active Substance: METAMIZOLE
     Indication: ACUTE MYOCARDIAL INFARCTION
     Dosage: 1 DF, BID
  29. OSTEVIT-D [Concomitant]
     Indication: VITAMIN D DEFICIENCY
     Dosage: 1 DF, DAILY, EQUIVALENT TO 1000 UNITS VITAMIN D3
  30. STEMETIL [Concomitant]
     Active Substance: PROCHLORPERAZINE MALEATE
     Indication: VERTIGO POSITIONAL
     Dosage: 1 TO 2 TID, PRN
  31. INFLUENZA [Concomitant]
     Active Substance: INFLUENZA VIRUS VACCINE
     Dosage: UNK
     Dates: start: 20120319
  32. PANADOL [Concomitant]
     Active Substance: ACETAMINOPHEN
     Indication: PAIN
     Dosage: 2 DF, TID
     Route: 048
  33. ACLASTA [Suspect]
     Active Substance: ZOLEDRONIC ACID
     Indication: OSTEOPOROSIS
     Dosage: 5 MG, ONCE YEARLY
     Route: 042
     Dates: start: 201303
  34. AVAPRO [Concomitant]
     Active Substance: IRBESARTAN
     Dosage: 300 MG, 1 MANE
  35. DIAMICRON MR [Concomitant]
     Active Substance: GLICLAZIDE
     Indication: TYPE 2 DIABETES MELLITUS
     Dosage: 2 DF, DAILY
  36. CARDIZEM CD [Concomitant]
     Active Substance: DILTIAZEM HYDROCHLORIDE
     Indication: HYPERTENSION
     Dosage: 1 DF, MANE
     Route: 048
  37. ELEUPHRAT [Concomitant]
     Active Substance: BETAMETHASONE DIPROPIONATE
     Indication: DERMATITIS
     Dosage: UKN, BID, PRN
     Route: 061

REACTIONS (26)
  - Cerebrovascular accident [Recovered/Resolved]
  - Thrombotic thrombocytopenic purpura [Unknown]
  - Tooth disorder [Unknown]
  - Hallucination [Unknown]
  - Gait disturbance [Unknown]
  - Haematocrit decreased [Recovered/Resolved]
  - Haemoglobin decreased [Recovered/Resolved]
  - Red blood cell count decreased [Recovered/Resolved]
  - Confusional state [Unknown]
  - Blood magnesium decreased [Not Recovered/Not Resolved]
  - Serum ferritin decreased [Recovered/Resolved]
  - Mucosal inflammation [Unknown]
  - Blood iron decreased [Recovered/Resolved]
  - Red cell distribution width increased [Recovered/Resolved]
  - Gastrointestinal disorder [Unknown]
  - Colitis [Unknown]
  - Urinary tract infection [Unknown]
  - Diverticulum [Unknown]
  - Mean cell volume increased [Recovered/Resolved]
  - Magnesium deficiency [Unknown]
  - Melanosis coli [Unknown]
  - Blood potassium increased [Unknown]
  - Transferrin saturation increased [Not Recovered/Not Resolved]
  - Iron deficiency anaemia [Unknown]
  - Transferrin saturation decreased [Unknown]
  - Nocturia [Unknown]

NARRATIVE: CASE EVENT DATE: 2013
